FAERS Safety Report 21986114 (Version 2)
Quarter: 2023Q2

REPORT INFORMATION
  Report Type: Report from Study
  Country: CA (occurrence: CA)
  Receive Date: 20230213
  Receipt Date: 20230427
  Transmission Date: 20230722
  Serious: Yes (Other)
  Sender: FDA-Public Use
  Company Number: CA-OTSUKA-2023_003626

PATIENT
  Age: 54 Year
  Sex: Female

DRUGS (2)
  1. TOLVAPTAN [Suspect]
     Active Substance: TOLVAPTAN
     Indication: Congenital cystic kidney disease
     Dosage: 45 MG
     Route: 048
  2. TOLVAPTAN [Suspect]
     Active Substance: TOLVAPTAN
     Dosage: 15 MG
     Route: 048

REACTIONS (18)
  - Serum ferritin increased [Unknown]
  - Vitamin B12 increased [Unknown]
  - High density lipoprotein decreased [Unknown]
  - C-reactive protein increased [Unknown]
  - Blood alkaline phosphatase increased [Unknown]
  - Blood sodium decreased [Unknown]
  - Gamma-glutamyltransferase increased [Unknown]
  - Blood urea increased [Unknown]
  - Hypersensitivity [Unknown]
  - Blood creatinine increased [Unknown]
  - Nausea [Unknown]
  - Blood uric acid increased [Unknown]
  - Fatigue [Unknown]
  - Blood bilirubin increased [Unknown]
  - Alanine aminotransferase increased [Unknown]
  - Aspartate aminotransferase increased [Unknown]
  - Product dose omission issue [Unknown]
  - Product supply issue [Unknown]

NARRATIVE: CASE EVENT DATE: 20230131
